FAERS Safety Report 15440161 (Version 1)
Quarter: 2018Q4

REPORT INFORMATION
  Report Type: Spontaneous
  Country: CH (occurrence: CH)
  Receive Date: 20180928
  Receipt Date: 20180928
  Transmission Date: 20190204
  Serious: Yes (Hospitalization)
  Sender: FDA-Public Use
  Company Number: PHHY2018CH102852

PATIENT
  Age: 75 Year
  Sex: Female
  Weight: 65 kg

DRUGS (19)
  1. BACTRIM [Suspect]
     Active Substance: SULFAMETHOXAZOLE\TRIMETHOPRIM
     Indication: ANTIBIOTIC PROPHYLAXIS
     Dosage: UNK UNK, QW3 (800 MG DE SULFAMETHOXAZOLE ET 160 MG DE TRIMETHOPRIM)
     Route: 065
     Dates: start: 20180725, end: 20180806
  2. METOCLOPRAMIDE. [Concomitant]
     Active Substance: METOCLOPRAMIDE
     Indication: NAUSEA
     Dosage: 10 MG, PRN (EN R?SERVE MAX 3X/J ; AS NECESSARY)
     Route: 065
     Dates: start: 20180730, end: 20180806
  3. BENDAMUSTINE [Suspect]
     Active Substance: BENDAMUSTINE
     Indication: MANTLE CELL LYMPHOMA STAGE III
     Dosage: 150 MG, QD
     Route: 065
     Dates: start: 20180725, end: 20180726
  4. GLIMEPIRIDE ZENTIVA [Suspect]
     Active Substance: GLIMEPIRIDE
     Indication: TYPE 2 DIABETES MELLITUS
     Dosage: 3 MG, QD (M?DICAMENT ADMINISTR? AU LONG COURS (DATE DE D?BUT INCONNUE) ET JUSQU^AU 25.07PUIS REPRIS)
     Route: 065
     Dates: end: 20180806
  5. PANTOPRAZOL MEPHA [Concomitant]
     Active Substance: PANTOPRAZOLE SODIUM
     Indication: DYSPEPSIA
     Dosage: 40 MG, QD
     Route: 065
     Dates: start: 20180720
  6. LACTULOSE. [Concomitant]
     Active Substance: LACTULOSE
     Indication: CONSTIPATION
     Dosage: 15 ML, PRN (EN R?SERVE MAX 2X/J ; AS NECESSARY)
     Route: 065
     Dates: start: 20180730, end: 20180806
  7. PALONOSETRON. [Suspect]
     Active Substance: PALONOSETRON HYDROCHLORIDE
     Indication: PROPHYLAXIS OF NAUSEA AND VOMITING
     Dosage: 0.25 MG, QD
     Route: 065
     Dates: start: 20180725, end: 20180725
  8. FUROSEMIDE. [Suspect]
     Active Substance: FUROSEMIDE
     Indication: CARDIAC FAILURE ACUTE
     Dosage: 40 MG, QD
     Route: 065
     Dates: start: 20180727, end: 20180727
  9. ZOLPIDEM MEPHA [Suspect]
     Active Substance: ZOLPIDEM TARTRATE
     Indication: SLEEP DISORDER
     Dosage: 10 MG, PRN (EN R?SERVE MAX 1X/J ; AS NECESSARY)
     Route: 065
     Dates: start: 20180723, end: 20180806
  10. NOVORAPID [Concomitant]
     Active Substance: INSULIN ASPART
     Indication: TYPE 2 DIABETES MELLITUS
     Dosage: UNK (EN R?SERVE ? POSOLOGIE VARIABLE SELON GLYC?MIE ; AS NECESSARY)
     Route: 065
     Dates: start: 20180722
  11. VALACICLOVIR MEPHA [Suspect]
     Active Substance: VALACYCLOVIR HYDROCHLORIDE
     Indication: ANTIVIRAL PROPHYLAXIS
     Dosage: 500 MG, BID
     Route: 065
     Dates: start: 20180725, end: 20180806
  12. LANTUS [Concomitant]
     Active Substance: INSULIN GLARGINE
     Indication: TYPE 2 DIABETES MELLITUS
     Dosage: 13 IU, QD
     Route: 065
     Dates: start: 20180720
  13. DEXAMETHASONE. [Concomitant]
     Active Substance: DEXAMETHASONE
     Indication: CHEMOTHERAPY
     Dosage: 4 MG, QD
     Route: 065
     Dates: start: 20180726, end: 20180727
  14. CANDESARTAN MEPHA [Suspect]
     Active Substance: CANDESARTAN CILEXETIL
     Indication: HYPERTENSION
     Dosage: 8 MG, QD (M?DICAMENT ADMINISTR? DEPUIS DES ANN?ES, DATE EXACTE DU D?BUT NON PRECIS?E)
     Route: 065
     Dates: end: 20180806
  15. JENTADUETO [Suspect]
     Active Substance: LINAGLIPTIN\METFORMIN HYDROCHLORIDE
     Indication: TYPE 2 DIABETES MELLITUS
     Dosage: UNK UNK, BID (DOSE 2.5 MG DE LINAGLIPTINE ET 1000 MG DE METFORMINEADMINISTR? DEPUIS LONGTEMPS (DATE)
     Route: 065
     Dates: end: 20180806
  16. PARACETAMOL MEPHA [Suspect]
     Active Substance: ACETAMINOPHEN
     Indication: ANALGESIC THERAPY
     Dosage: 1 G, PRN (EN R?SERVE MAX 4X/J ; AS NECESSARY)
     Route: 065
     Dates: start: 20180720, end: 20180806
  17. PREDNISONE. [Concomitant]
     Active Substance: PREDNISONE
     Indication: MANTLE CELL LYMPHOMA STAGE III
     Dosage: 100 MG, QD
     Route: 065
     Dates: start: 20180720, end: 20180724
  18. ALLOPUR [Suspect]
     Active Substance: ALLOPURINOL
     Indication: HYPERURICAEMIA
     Dosage: 300 MG, QD
     Route: 065
     Dates: start: 20180720, end: 20180806
  19. FLUCONAZOLE. [Suspect]
     Active Substance: FLUCONAZOLE
     Indication: ANTIFUNGAL PROPHYLAXIS
     Dosage: 400 MG, QD
     Route: 065
     Dates: start: 20180725, end: 20180806

REACTIONS (3)
  - Hepatocellular injury [Recovering/Resolving]
  - Cholestasis [Recovering/Resolving]
  - Jaundice [Recovering/Resolving]

NARRATIVE: CASE EVENT DATE: 20180802
